FAERS Safety Report 26074591 (Version 2)
Quarter: 2025Q4

REPORT INFORMATION
  Report Type: Spontaneous
  Country: JP (occurrence: JP)
  Receive Date: 20251121
  Receipt Date: 20251210
  Transmission Date: 20260118
  Serious: Yes (Other)
  Sender: ACCORD
  Company Number: JP-Accord-513741

PATIENT
  Age: 73 Year
  Sex: Male
  Weight: 53.2 kg

DRUGS (6)
  1. PACLITAXEL [Suspect]
     Active Substance: PACLITAXEL
     Indication: Angiosarcoma
     Dosage: WEEKLY THERAPY; WEEKLY FOR A TOTAL OF FIVE DOSES
  2. TIQUIZIUM BROMIDE [Concomitant]
     Active Substance: TIQUIZIUM BROMIDE
  3. REBAMIPIDE [Concomitant]
     Active Substance: REBAMIPIDE
  4. AZULENE [Concomitant]
     Active Substance: AZULENE
  5. FAMOTIDINE [Concomitant]
     Active Substance: FAMOTIDINE
  6. FEBUXOSTAT [Concomitant]
     Active Substance: FEBUXOSTAT

REACTIONS (4)
  - Diarrhoea [Unknown]
  - Tumour necrosis [Unknown]
  - Pneumothorax [Unknown]
  - Decreased appetite [Unknown]
